FAERS Safety Report 14288242 (Version 1)
Quarter: 2017Q4

REPORT INFORMATION
  Report Type: Spontaneous
  Country: US (occurrence: US)
  Receive Date: 20171214
  Receipt Date: 20171214
  Transmission Date: 20180321
  Serious: Yes (Death)
  Sender: FDA-Public Use
  Company Number: US-LOREAL USA PRODUCTS, INC.-2017LOR00008

PATIENT
  Sex: Female

DRUGS (1)
  1. KIEHLS SINCE 1851 DERM SOLN SUPER FLUID UV DEF ULTRA LIGHT SUNSCREEN SPF 50 PLUS [Suspect]
     Active Substance: AVOBENZONE\HOMOSALATE\OCTISALATE\OCTOCRYLENE\OXYBENZONE

REACTIONS (1)
  - Atypical pneumonia [Fatal]

NARRATIVE: CASE EVENT DATE: 20171024
